FAERS Safety Report 23876207 (Version 1)
Quarter: 2024Q2

REPORT INFORMATION
  Report Type: Spontaneous
  Country: GB (occurrence: GB)
  Receive Date: 20240520
  Receipt Date: 20240520
  Transmission Date: 20240716
  Serious: Yes (Death, Hospitalization, Other)
  Sender: FDA-Public Use
  Company Number: None

PATIENT
  Age: 59 Year
  Sex: Male
  Weight: 62 kg

DRUGS (137)
  1. TRASTUZUMAB [Suspect]
     Active Substance: TRASTUZUMAB
     Indication: Breast cancer metastatic
     Dosage: 1218 MG, QW (CUMULATIVE DOSE 5575.25MG)
     Route: 065
     Dates: start: 20150930
  2. TRASTUZUMAB [Suspect]
     Active Substance: TRASTUZUMAB
     Dosage: 420 MG, Q3W
     Route: 065
  3. TRASTUZUMAB [Suspect]
     Active Substance: TRASTUZUMAB
     Dosage: 1827 MG, QW (CUMULATIVE DOSE: 8362.875MG)
     Route: 065
     Dates: start: 20150930
  4. TRASTUZUMAB [Suspect]
     Active Substance: TRASTUZUMAB
     Dosage: 609 MG, Q3W (CUMULATIVE DOSE: 929.208333MG)
     Route: 065
     Dates: start: 20150930
  5. TRASTUZUMAB [Suspect]
     Active Substance: TRASTUZUMAB
     Dosage: 840 MG, Q3W
     Route: 065
  6. PERTUZUMAB [Suspect]
     Active Substance: PERTUZUMAB
     Indication: Breast cancer metastatic
     Dosage: 420 MG, Q3W (20 MG, Q3W (CUMULATIVE DOSE: 820.83 MG))
     Route: 065
  7. PERTUZUMAB [Suspect]
     Active Substance: PERTUZUMAB
     Dosage: 840 MG, Q3W (840 MG, Q3W (CUMULATIVE DOSE: 2481.6667 MG))
     Route: 065
     Dates: start: 20150930
  8. PERTUZUMAB [Suspect]
     Active Substance: PERTUZUMAB
     Dosage: 2 IU, QW (2 U, WEEKLY (1/W))
     Route: 065
  9. RISPERIDONE [Suspect]
     Active Substance: RISPERIDONE
     Indication: Product used for unknown indication
     Dosage: 6 MILLIGRAM, QD
     Route: 048
  10. RISPERIDONE [Suspect]
     Active Substance: RISPERIDONE
     Dosage: 6 MG, BID
     Route: 065
  11. RISPERIDONE [Suspect]
     Active Substance: RISPERIDONE
     Dosage: 2 MILLIGRAM, QD
     Route: 048
  12. RISPERIDONE [Suspect]
     Active Substance: RISPERIDONE
     Dosage: 3 MILLIGRAM, QD
     Route: 048
  13. RISPERIDONE [Suspect]
     Active Substance: RISPERIDONE
     Dosage: 4 MG, QD
     Route: 065
  14. RISPERIDONE [Suspect]
     Active Substance: RISPERIDONE
     Dosage: 1 GRAM, QD
     Route: 048
  15. OLANZAPINE [Suspect]
     Active Substance: OLANZAPINE
     Indication: Product used for unknown indication
     Dosage: 15 MG;
     Route: 048
     Dates: start: 20040217
  16. OLANZAPINE [Suspect]
     Active Substance: OLANZAPINE
     Dosage: 2.5 MG, QD
     Route: 048
     Dates: start: 20080823
  17. OLANZAPINE [Suspect]
     Active Substance: OLANZAPINE
     Dosage: 10 MILLIGRAM
     Route: 048
  18. OLANZAPINE [Suspect]
     Active Substance: OLANZAPINE
     Dosage: 1 MILLIGRAM
     Route: 048
  19. OLANZAPINE [Suspect]
     Active Substance: OLANZAPINE
     Dosage: 15 MG;
     Route: 048
     Dates: start: 20060704
  20. XGEVA [Suspect]
     Active Substance: DENOSUMAB
     Indication: Metastases to bone
     Dosage: 120 MG, QD
     Route: 065
     Dates: start: 20150930
  21. XGEVA [Suspect]
     Active Substance: DENOSUMAB
     Indication: Gastrooesophageal reflux disease
     Dosage: 120 MG (OTHER, EVERY 9 WEEKS)
     Route: 058
     Dates: start: 20150930
  22. RISPERDAL [Suspect]
     Active Substance: RISPERIDONE
     Indication: Schizophrenia
     Dosage: 1 MG, QD
     Route: 065
  23. RISPERDAL [Suspect]
     Active Substance: RISPERIDONE
     Dosage: 4 MG, QD
     Route: 065
  24. RISPERDAL [Suspect]
     Active Substance: RISPERIDONE
     Dosage: 6 MG, QD
     Route: 048
  25. ZUCLOPENTHIXOL [Suspect]
     Active Substance: ZUCLOPENTHIXOL
     Indication: Schizophrenia
     Dosage: 800 MG, QW (800 MG, QW, (04 FEB 2003)
     Route: 065
     Dates: start: 20040217
  26. ZUCLOPENTHIXOL [Suspect]
     Active Substance: ZUCLOPENTHIXOL
     Dosage: 400 MG, BIW
     Route: 065
     Dates: start: 20030204, end: 20040217
  27. ZUCLOPENTHIXOL [Suspect]
     Active Substance: ZUCLOPENTHIXOL
     Dosage: 400 MG
     Route: 030
     Dates: start: 20040601, end: 20041018
  28. ZUCLOPENTHIXOL [Suspect]
     Active Substance: ZUCLOPENTHIXOL
     Dosage: 300 MG, QW
     Route: 065
  29. ZUCLOPENTHIXOL [Suspect]
     Active Substance: ZUCLOPENTHIXOL
     Dosage: 300 MG, WEEKLY (1/W)
     Route: 030
     Dates: start: 20091009
  30. ZUCLOPENTHIXOL [Suspect]
     Active Substance: ZUCLOPENTHIXOL
     Dosage: 400 MG
     Route: 030
     Dates: start: 20041018, end: 20041018
  31. ZUCLOPENTHIXOL [Suspect]
     Active Substance: ZUCLOPENTHIXOL
     Dosage: 800 MG, QW (400 MG, BIW)
     Route: 065
     Dates: start: 20041018, end: 20041018
  32. ZUCLOPENTHIXOL [Suspect]
     Active Substance: ZUCLOPENTHIXOL
     Dosage: 400 MILLIGRAM, QWK
     Route: 030
     Dates: start: 20040217, end: 20040601
  33. ZUCLOPENTHIXOL [Suspect]
     Active Substance: ZUCLOPENTHIXOL
     Dosage: 400 MG, BIW
     Route: 030
     Dates: start: 20040601, end: 20041018
  34. ZUCLOPENTHIXOL [Suspect]
     Active Substance: ZUCLOPENTHIXOL
     Dosage: 300 MG, QW
     Route: 030
     Dates: start: 20091018
  35. ZUCLOPENTHIXOL [Suspect]
     Active Substance: ZUCLOPENTHIXOL
     Dosage: 400 MILLIGRAM, QWK
     Route: 030
     Dates: start: 20030204, end: 20040217
  36. ZUCLOPENTHIXOL [Suspect]
     Active Substance: ZUCLOPENTHIXOL
     Dosage: 400 MG, QW
     Route: 065
     Dates: start: 20191018
  37. ZUCLOPENTHIXOL [Suspect]
     Active Substance: ZUCLOPENTHIXOL
     Dosage: 400 MILLIGRAM
     Route: 030
     Dates: start: 20040901
  38. ZUCLOPENTHIXOL [Suspect]
     Active Substance: ZUCLOPENTHIXOL
     Dosage: 400 MILLIGRAM OTHER (BIWEEKLY)
     Route: 030
     Dates: start: 20041018, end: 20041018
  39. ZUCLOPENTHIXOL [Suspect]
     Active Substance: ZUCLOPENTHIXOL
     Dosage: 400 MG
     Route: 065
     Dates: start: 20030304, end: 20040217
  40. ZUCLOPENTHIXOL [Suspect]
     Active Substance: ZUCLOPENTHIXOL
     Dosage: 800 MG, QW
     Route: 030
     Dates: start: 20040601, end: 20041018
  41. ZUCLOPENTHIXOL [Suspect]
     Active Substance: ZUCLOPENTHIXOL
     Dosage: 300 MG, QD
     Route: 030
     Dates: start: 20091009
  42. ZUCLOPENTHIXOL [Suspect]
     Active Substance: ZUCLOPENTHIXOL
     Dosage: UNK
     Route: 065
  43. ZUCLOPENTHIXOL [Suspect]
     Active Substance: ZUCLOPENTHIXOL
     Dosage: 300 MG, QD
     Route: 030
     Dates: start: 20091009
  44. ARIPIPRAZOLE [Suspect]
     Active Substance: ARIPIPRAZOLE
     Indication: Schizophrenia
     Dosage: 5 MILLIGRAM
     Route: 048
  45. PACLITAXEL [Suspect]
     Active Substance: PACLITAXEL
     Indication: Product used for unknown indication
     Dosage: 150 MG, QW (CUMULATIVE DOSE: 428.57 MG)
     Route: 065
     Dates: start: 20151111, end: 20151222
  46. PACLITAXEL [Suspect]
     Active Substance: PACLITAXEL
     Dosage: 120 MG, QW (CUMULATIVE DOSE: 377.142)
     Route: 065
     Dates: start: 20151223, end: 20151223
  47. PACLITAXEL [Suspect]
     Active Substance: PACLITAXEL
     Dosage: 120 MG, QW, WEEKLY (1/W)
     Route: 042
     Dates: start: 20151111, end: 20151222
  48. LITHIUM [Suspect]
     Active Substance: LITHIUM
     Indication: Product used for unknown indication
     Dosage: 6 MG, QD
     Route: 065
  49. LITHIUM [Suspect]
     Active Substance: LITHIUM
     Dosage: 1 MG
     Route: 048
  50. LITHIUM [Suspect]
     Active Substance: LITHIUM
     Dosage: 2 G
     Route: 065
  51. DOCETAXEL [Suspect]
     Active Substance: DOCETAXEL\DOCETAXEL ANHYDROUS
     Indication: Breast cancer metastatic
     Dosage: UNK
     Route: 065
     Dates: start: 20151222
  52. DOCETAXEL [Suspect]
     Active Substance: DOCETAXEL\DOCETAXEL ANHYDROUS
     Dosage: 110 MG, Q3W CUMULATIVE DOSE: 324.98)/30 SEP 2015)
     Route: 065
     Dates: start: 20150930, end: 20151021
  53. DOCETAXEL [Suspect]
     Active Substance: DOCETAXEL\DOCETAXEL ANHYDROUS
     Dosage: 220 MG
     Dates: start: 20151222
  54. DOCETAXEL [Suspect]
     Active Substance: DOCETAXEL\DOCETAXEL ANHYDROUS
     Dosage: 110 MG, Q3W (110 MG, Q3W (CUMULATIVE DOSE: 324.98))
     Dates: start: 20150930, end: 20151021
  55. HALOPERIDOL [Suspect]
     Active Substance: HALOPERIDOL
     Indication: Schizophrenia
     Dosage: 10 MG, QD (5 MG, BID)
     Route: 048
  56. HALOPERIDOL [Suspect]
     Active Substance: HALOPERIDOL
     Dosage: 5 MG, QD
     Route: 048
  57. HALOPERIDOL [Suspect]
     Active Substance: HALOPERIDOL
     Dosage: 20 MG, QD
     Route: 048
  58. HALOPERIDOL [Suspect]
     Active Substance: HALOPERIDOL
     Dosage: 40 MG, QD
     Route: 048
  59. HALOPERIDOL [Suspect]
     Active Substance: HALOPERIDOL
     Dosage: 20 MG, Q12H
     Route: 048
  60. HALOPERIDOL [Suspect]
     Active Substance: HALOPERIDOL
     Dosage: 10 MG, QD
     Route: 048
  61. HALOPERIDOL [Suspect]
     Active Substance: HALOPERIDOL
     Dosage: 5 MG, Q12H
     Route: 065
  62. CLOZARIL [Suspect]
     Active Substance: CLOZAPINE
     Indication: Schizophrenia
     Dosage: 6000 MG
     Route: 048
     Dates: start: 20100823
  63. CLOZARIL [Suspect]
     Active Substance: CLOZAPINE
     Dosage: 245 MG
     Route: 048
     Dates: start: 20200521
  64. CLOZARIL [Suspect]
     Active Substance: CLOZAPINE
     Dosage: 6000 MG
     Route: 048
     Dates: start: 20200521
  65. CLOZARIL [Suspect]
     Active Substance: CLOZAPINE
     Dosage: 275 MG, QD
     Route: 048
     Dates: start: 20200521, end: 2020
  66. CLOZARIL [Suspect]
     Active Substance: CLOZAPINE
     Route: 065
     Dates: start: 20220719
  67. CLOZARIL [Suspect]
     Active Substance: CLOZAPINE
     Dosage: 300 MG, QD (PM)
     Route: 065
  68. CLOZARIL [Suspect]
     Active Substance: CLOZAPINE
     Dosage: 1 DOSAGE FORM, QD (EACH MORNING)
     Route: 048
     Dates: start: 2011
  69. CLOZARIL [Suspect]
     Active Substance: CLOZAPINE
     Dosage: 50 MILLIGRAM, QD
     Route: 048
     Dates: start: 20200521
  70. CLOZARIL [Suspect]
     Active Substance: CLOZAPINE
     Dosage: 400 MG, QD
     Route: 048
     Dates: start: 20191209, end: 20191223
  71. CLOZARIL [Suspect]
     Active Substance: CLOZAPINE
     Dosage: 6000 MILLIGRAM
     Route: 048
     Dates: start: 20201223, end: 20201223
  72. CLOZARIL [Suspect]
     Active Substance: CLOZAPINE
     Dosage: 6000 MG
     Route: 048
     Dates: start: 20201207
  73. CLOZARIL [Suspect]
     Active Substance: CLOZAPINE
     Dosage: 600 MG AM (1 ONCE A DAY)
     Route: 048
     Dates: start: 2011
  74. CLOZARIL [Suspect]
     Active Substance: CLOZAPINE
     Dosage: 300 MG, QD (PM)
     Route: 065
     Dates: start: 20100823
  75. CLOZARIL [Suspect]
     Active Substance: CLOZAPINE
     Dosage: UNK
     Route: 065
     Dates: start: 20191209, end: 20191223
  76. CLOZARIL [Suspect]
     Active Substance: CLOZAPINE
     Dosage: 100 MG, QD
     Route: 048
     Dates: start: 20200521, end: 20200521
  77. CLOZARIL [Suspect]
     Active Substance: CLOZAPINE
     Dosage: 300 MG, QD (PM;
     Route: 065
     Dates: start: 20100823, end: 20200823
  78. CLOZARIL [Suspect]
     Active Substance: CLOZAPINE
     Dosage: 50 MILLIGRAM, QD
     Route: 048
     Dates: start: 20190809, end: 20190823
  79. CLOZARIL [Suspect]
     Active Substance: CLOZAPINE
     Dosage: 1 DOSAGE FORM, QD (PM)
     Route: 048
     Dates: start: 2011
  80. CLOZARIL [Suspect]
     Active Substance: CLOZAPINE
     Dosage: 50 MG, QD;
     Route: 048
     Dates: start: 20191207, end: 20191223
  81. CLOZARIL [Suspect]
     Active Substance: CLOZAPINE
     Dosage: 400 MILLIGRAM, BID
     Route: 048
     Dates: start: 20200207
  82. CLOZARIL [Suspect]
     Active Substance: CLOZAPINE
     Dosage: 6000 MG
     Route: 048
     Dates: start: 20191223, end: 20191223
  83. CLOZARIL [Suspect]
     Active Substance: CLOZAPINE
     Dosage: 245 MG, QD
     Route: 065
     Dates: start: 20191223, end: 20191223
  84. CLOZARIL [Suspect]
     Active Substance: CLOZAPINE
     Dosage: 6000 MG;
     Route: 065
  85. CLOZARIL [Suspect]
     Active Substance: CLOZAPINE
     Dosage: 800 MG, QD
     Route: 065
     Dates: end: 20220719
  86. CLOZARIL [Suspect]
     Active Substance: CLOZAPINE
     Dosage: 50 MG, QD
     Route: 048
     Dates: start: 20191209, end: 20191223
  87. CLOZARIL [Suspect]
     Active Substance: CLOZAPINE
     Dosage: 6000 MILLIGRAM
     Route: 048
     Dates: start: 20201209, end: 20201223
  88. CLOZARIL [Suspect]
     Active Substance: CLOZAPINE
     Dosage: 275 MG
     Route: 048
     Dates: start: 20191209, end: 20191223
  89. CLOZARIL [Suspect]
     Active Substance: CLOZAPINE
     Dosage: 400 MG, QD
     Route: 065
     Dates: start: 20230823
  90. CLOZARIL [Suspect]
     Active Substance: CLOZAPINE
     Dosage: 400 MG, QD
     Route: 065
  91. CLOZARIL [Suspect]
     Active Substance: CLOZAPINE
     Dosage: UNK UNK, QD
     Route: 048
     Dates: start: 20190823, end: 20190823
  92. CLOZARIL [Suspect]
     Active Substance: CLOZAPINE
     Dosage: 100 MG, QD (AM);
     Route: 065
     Dates: start: 20210521
  93. CLOZARIL [Suspect]
     Active Substance: CLOZAPINE
     Dosage: 600 MILLIGRAM, QD
     Route: 048
     Dates: start: 20200521, end: 2021
  94. CLOZARIL [Suspect]
     Active Substance: CLOZAPINE
     Dosage: 400 MG, QD
     Route: 048
     Dates: start: 20191223, end: 20191223
  95. CLOZARIL [Suspect]
     Active Substance: CLOZAPINE
     Dosage: 300 MG, QD (PM)
     Route: 065
     Dates: start: 20100823, end: 20100823
  96. CLOZARIL [Suspect]
     Active Substance: CLOZAPINE
     Dosage: 400 MG, QD
     Route: 048
     Dates: start: 20201207
  97. CLOZARIL [Suspect]
     Active Substance: CLOZAPINE
     Dosage: 400 MG, QD
     Route: 048
     Dates: start: 20191223, end: 20191223
  98. CLOZARIL [Suspect]
     Active Substance: CLOZAPINE
     Dosage: 800 MG, QD
     Route: 065
     Dates: start: 20201207
  99. CLOZARIL [Suspect]
     Active Substance: CLOZAPINE
     Dosage: 50 MG, QD
     Route: 065
     Dates: start: 20191209, end: 20191223
  100. CLOZARIL [Suspect]
     Active Substance: CLOZAPINE
     Dosage: 300 MILLIGRAM, QD
     Route: 065
     Dates: start: 20100823
  101. CLOZARIL [Suspect]
     Active Substance: CLOZAPINE
     Dosage: 200 MG, Q12H (200 MG, BID)
     Route: 048
     Dates: start: 20191209, end: 20191223
  102. LORAZEPAM [Suspect]
     Active Substance: LORAZEPAM
     Indication: Product used for unknown indication
     Dosage: 1 MILLIGRAM
     Route: 048
  103. CHLORPROMAZINE [Suspect]
     Active Substance: CHLORPROMAZINE
     Indication: Schizophrenia
     Dosage: 75 MILLIGRAM
     Route: 048
  104. ZUCLOPENTHIXOL HYDROCHLORIDE [Suspect]
     Active Substance: ZUCLOPENTHIXOL HYDROCHLORIDE
     Indication: Schizophrenia
     Dosage: 400 MG, CYCLIC (400 MILLIGRAM, CYCLICAL, (400 MG, CYCLIC (400 MG, BI WEEKLY))
     Route: 048
     Dates: start: 20040217, end: 20040601
  105. ZUCLOPENTHIXOL HYDROCHLORIDE [Suspect]
     Active Substance: ZUCLOPENTHIXOL HYDROCHLORIDE
     Dosage: 300 MG, QW (300 MG, WEEKLY)
     Route: 065
  106. ZUCLOPENTHIXOL HYDROCHLORIDE [Suspect]
     Active Substance: ZUCLOPENTHIXOL HYDROCHLORIDE
     Dosage: 400 MG, QW (400 MG, WEEKLY)
     Route: 065
     Dates: start: 20030204
  107. ZUCLOPENTHIXOL HYDROCHLORIDE [Suspect]
     Active Substance: ZUCLOPENTHIXOL HYDROCHLORIDE
     Route: 065
     Dates: start: 20030304
  108. ZUCLOPENTHIXOL HYDROCHLORIDE [Suspect]
     Active Substance: ZUCLOPENTHIXOL HYDROCHLORIDE
     Dosage: 800 MG, QW (800 MG, WEEKLY)
     Route: 030
     Dates: start: 20040601
  109. ZUCLOPENTHIXOL HYDROCHLORIDE [Suspect]
     Active Substance: ZUCLOPENTHIXOL HYDROCHLORIDE
     Route: 065
     Dates: start: 20040901
  110. ZUCLOPENTHIXOL HYDROCHLORIDE [Suspect]
     Active Substance: ZUCLOPENTHIXOL HYDROCHLORIDE
     Dosage: 400 MG, CYCLICAL (400 MG, BIWEEKLY)
     Route: 030
     Dates: start: 20041018
  111. ZUCLOPENTHIXOL HYDROCHLORIDE [Suspect]
     Active Substance: ZUCLOPENTHIXOL HYDROCHLORIDE
     Dosage: 300 MG, QD (300 MG, EVERY DAY)
     Route: 065
     Dates: start: 20091009
  112. ZUCLOPENTHIXOL HYDROCHLORIDE [Suspect]
     Active Substance: ZUCLOPENTHIXOL HYDROCHLORIDE
     Dosage: 400 MG, QW (400 MG, EVERY WEEK)
     Route: 065
     Dates: start: 20191018
  113. ZUCLOPENTHIXOL HYDROCHLORIDE [Suspect]
     Active Substance: ZUCLOPENTHIXOL HYDROCHLORIDE
     Route: 030
     Dates: start: 20041018
  114. PREGABALIN [Concomitant]
     Active Substance: PREGABALIN
     Indication: Product used for unknown indication
     Dosage: 75 MG (EVERY 0.5 DAY);
     Route: 065
     Dates: start: 201509
  115. CHOLECALCIFEROL [Concomitant]
     Active Substance: CHOLECALCIFEROL
     Indication: Product used for unknown indication
     Dosage: 2 DOSAGE FORM, QD
     Route: 065
  116. PIPERACILLIN SODIUM\TAZOBACTAM SODIUM [Concomitant]
     Active Substance: PIPERACILLIN SODIUM\TAZOBACTAM SODIUM
     Indication: Febrile neutropenia
     Dosage: UNK; ;
     Route: 065
     Dates: start: 20151121, end: 201511
  117. AMOXICILLIN\CLAVULANATE POTASSIUM [Concomitant]
     Active Substance: AMOXICILLIN\CLAVULANATE POTASSIUM
     Indication: Febrile neutropenia
     Dosage: 625 MG (120 MG, OTHER (EVERY 9 WEEKS));
     Route: 065
     Dates: start: 20151111
  118. AMOXICILLIN\CLAVULANATE POTASSIUM [Concomitant]
     Active Substance: AMOXICILLIN\CLAVULANATE POTASSIUM
     Dosage: 625 MG (EVERY 0.33 DAYS, CUMULATIVE DOSE:16875);
     Dates: start: 20151122, end: 20151125
  119. AMOXICILLIN\CLAVULANATE POTASSIUM [Concomitant]
     Active Substance: AMOXICILLIN\CLAVULANATE POTASSIUM
     Dosage: 2500 MG, QD
     Dates: start: 20151122, end: 20151122
  120. MORPHINE SULFATE [Concomitant]
     Active Substance: MORPHINE SULFATE
     Indication: Product used for unknown indication
     Dosage: 10 MG;
     Route: 065
     Dates: start: 201509
  121. LEVOFLOXACIN [Concomitant]
     Active Substance: LEVOFLOXACIN
     Indication: Febrile neutropenia
     Dosage: 500 MG, QD (CUMULATIVE DOSE: 3000)
     Route: 065
     Dates: start: 20151125
  122. GENTAMICIN [Concomitant]
     Active Substance: GENTAMICIN
     Indication: Febrile neutropenia
     Dosage: UNK; ;
     Dates: start: 20151121, end: 201511
  123. CALCIUM\CHOLECALCIFEROL [Concomitant]
     Active Substance: CALCIUM\CHOLECALCIFEROL
     Indication: Product used for unknown indication
     Dosage: 2 DOSAGE FORM, QD
     Route: 065
     Dates: start: 20091018
  124. RANITIDINE [Concomitant]
     Active Substance: RANITIDINE
     Indication: Gastrooesophageal reflux disease
     Dosage: 150 MILLIGRAM, QWK
     Route: 065
  125. RANITIDINE [Concomitant]
     Active Substance: RANITIDINE
     Dosage: 75 MG (75 MG, WEEKLY (1/W));
  126. RANITIDINE [Concomitant]
     Active Substance: RANITIDINE
     Dosage: 50 MG, QW (CUMULATIVE DOSE: 142.857) 50 MG, QW (50 MG, WEEKLY (1/W))
     Dates: start: 20151111
  127. MORPHINE [Concomitant]
     Active Substance: MORPHINE
     Indication: Pain
     Dosage: 30 MG (EVERY 0.5 DAY);
     Route: 065
     Dates: start: 201509
  128. MORPHINE [Concomitant]
     Active Substance: MORPHINE
     Dosage: 15 MG, QD
     Dates: start: 201510
  129. MORPHINE [Concomitant]
     Active Substance: MORPHINE
     Dosage: 60 MG (30 MG, BID)
     Dates: start: 201509
  130. TAZOBACTAM SODIUM [Concomitant]
     Active Substance: TAZOBACTAM SODIUM
     Indication: Febrile neutropenia
     Dosage: UNK; ;
     Route: 065
     Dates: start: 20151121
  131. MIRTAZAPINE [Concomitant]
     Active Substance: MIRTAZAPINE
     Indication: Product used for unknown indication
     Dosage: 15 MG, QD
     Route: 065
     Dates: start: 201510
  132. DULOXETINE [Concomitant]
     Active Substance: DULOXETINE
     Indication: Product used for unknown indication
     Dosage: UNK; ;
     Route: 065
  133. CHLORPHENIRAMINE MALEATE [Concomitant]
     Active Substance: CHLORPHENIRAMINE MALEATE
     Indication: Product used for unknown indication
     Dosage: 10 MG, QW (CUMULATIVE DOSE 28.57)
     Route: 065
     Dates: start: 20151111
  134. ACETAMINOPHEN [Concomitant]
     Active Substance: ACETAMINOPHEN
     Indication: Pain
     Dosage: 500 MG (DOSE FORM 245);
     Route: 065
     Dates: start: 20150127
  135. ACETAMINOPHEN [Concomitant]
     Active Substance: ACETAMINOPHEN
     Dosage: 15 MILLIGRAM, QD
     Dates: start: 201510
  136. DENOSUMAB [Concomitant]
     Active Substance: DENOSUMAB
     Indication: Gastrooesophageal reflux disease
     Dosage: 120 MG, QD (625 MG, QID)
     Route: 065
  137. DENOSUMAB [Concomitant]
     Active Substance: DENOSUMAB
     Indication: Metastases to bone
     Dosage: 120 MG, EVERY 9 WEEKS/30 SEP 2015120 MG,(CUMULATIVE DOSE: 118.174);
     Route: 065
     Dates: start: 20150930

REACTIONS (30)
  - Schizophrenia [Fatal]
  - Leukopenia [Fatal]
  - Mucosal inflammation [Fatal]
  - Disease progression [Fatal]
  - Cellulitis [Fatal]
  - Nausea [Fatal]
  - Delusion of grandeur [Fatal]
  - Extrapyramidal disorder [Fatal]
  - Neuropathy peripheral [Fatal]
  - Affective disorder [Fatal]
  - Platelet count decreased [Fatal]
  - Dyspepsia [Fatal]
  - Neutropenia [Fatal]
  - Alopecia [Fatal]
  - Hallucination, auditory [Fatal]
  - Thrombocytopenia [Fatal]
  - Fatigue [Fatal]
  - Lymphocyte count decreased [Fatal]
  - Psychotic disorder [Fatal]
  - Neutrophil count increased [Fatal]
  - Nasal discomfort [Fatal]
  - COVID-19 [Fatal]
  - Seizure [Fatal]
  - Leukocytosis [Fatal]
  - Diarrhoea [Fatal]
  - Overdose [Unknown]
  - Incorrect dose administered [Fatal]
  - Medication error [Unknown]
  - Off label use [Unknown]
  - Drug abuse [Unknown]

NARRATIVE: CASE EVENT DATE: 20150930
